FAERS Safety Report 9099850 (Version 2)
Quarter: 2013Q1

REPORT INFORMATION
  Report Type: Spontaneous
  Country: US (occurrence: US)
  Receive Date: 20130214
  Receipt Date: 20130221
  Transmission Date: 20140127
  Serious: Yes (Other)
  Sender: FDA-Public Use
  Company Number: US-JNJFOC-20130203211

PATIENT
  Age: 71 Year
  Sex: Female

DRUGS (6)
  1. ZYRTEC [Suspect]
     Route: 048
  2. ZYRTEC [Suspect]
     Indication: LACRIMATION INCREASED
     Route: 048
     Dates: start: 20130201, end: 20130201
  3. SALINE NOSE SPRAY [Concomitant]
     Indication: NASAL CONGESTION
     Route: 045
     Dates: start: 20130201
  4. FLECAINIDE [Concomitant]
  5. METOPROLOL [Concomitant]
  6. BACTRIM [Concomitant]

REACTIONS (4)
  - Atrial fibrillation [Not Recovered/Not Resolved]
  - Nasal congestion [Recovering/Resolving]
  - Drug administered to patient of inappropriate age [Unknown]
  - Palpitations [None]
